FAERS Safety Report 9155179 (Version 5)
Quarter: 2013Q2

REPORT INFORMATION
  Report Type: Spontaneous
  Country: PR (occurrence: PR)
  Receive Date: 20130311
  Receipt Date: 20130530
  Transmission Date: 20140414
  Serious: Yes (Hospitalization)
  Sender: FDA-Public Use
  Company Number: PR-ABBOTT-13P-131-1054459-00

PATIENT
  Age: 7 Year
  Sex: Female
  Weight: 27.24 kg

DRUGS (3)
  1. LUPRON DEPOT-PED (3 MONTH) [Suspect]
     Indication: PRECOCIOUS PUBERTY
     Route: 030
     Dates: start: 201110, end: 20130125
  2. ZYRTEC [Concomitant]
     Indication: HYPERSENSITIVITY
     Route: 048
  3. ALBUTEROL [Concomitant]
     Indication: ASTHMA
     Dosage: EVERY 6-8 HOURS AS NEEDED
     Route: 048

REACTIONS (5)
  - Injection site abscess [Recovered/Resolved]
  - Injection site abscess [Recovered/Resolved]
  - Injection site abscess [Recovered/Resolved]
  - Haemoglobin decreased [Unknown]
  - Drug ineffective [Not Recovered/Not Resolved]
